FAERS Safety Report 18761183 (Version 1)
Quarter: 2021Q1

REPORT INFORMATION
  Report Type: Report from Study
  Country: None (occurrence: US)
  Receive Date: 20210119
  Receipt Date: 20210119
  Transmission Date: 20210419
  Serious: Yes (Other)
  Sender: FDA-Public Use
  Company Number: US-ABBVIE-21K-163-3732471-00

PATIENT
  Sex: Male

DRUGS (1)
  1. VENCLEXTA [Suspect]
     Active Substance: VENETOCLAX
     Indication: MANTLE CELL LYMPHOMA
     Route: 048
     Dates: start: 20191211

REACTIONS (10)
  - Abdominal lymphadenopathy [Unknown]
  - Hilar lymphadenopathy [Unknown]
  - Ascites [Unknown]
  - Oedema [Unknown]
  - Splenomegaly [Unknown]
  - Malignant neoplasm progression [Unknown]
  - Lymphadenopathy mediastinal [Unknown]
  - Lymphadenopathy [Unknown]
  - Groin pain [Unknown]
  - Cellulitis [Unknown]
